FAERS Safety Report 8379716-0 (Version None)
Quarter: 2012Q1

REPORT INFORMATION
  Report Type: 
  Country: None (occurrence: None)
  Receive Date: 20120323
  Receipt Date: 20110426
  Transmission Date: 20120608
  Serious: Yes (Hospitalization)
  Sender: FDA-Public Use
  Company Number: 163-21880-11040319

PATIENT
  Age: 100 Year
  Sex: Female

DRUGS (4)
  1. REVLIMID [Suspect]
     Indication: MULTIPLE MYELOMA
     Dosage: 10 MG, EVERY OTHER DAY FOR 21 DAYS, PO
     Route: 048
     Dates: start: 20080202
  2. DEXAMETHASONE [Concomitant]
  3. ASPIRIN [Concomitant]
  4. DILTIAZEM [Concomitant]

REACTIONS (1)
  - PNEUMONIA [None]
